FAERS Safety Report 6161044-5 (Version None)
Quarter: 2009Q2

REPORT INFORMATION
  Report Type: 
  Country: None (occurrence: None)
  Receive Date: 20090420
  Receipt Date: 20090408
  Transmission Date: 20091009
  Serious: Yes (Death)
  Sender: FDA-Public Use
  Company Number: US-PFIZER INC-2009195765

PATIENT
  Age: 47 Year
  Sex: Male
  Weight: 111.11 kg

DRUGS (4)
  1. XANAX [Suspect]
     Indication: CELLULITIS
     Route: 048
     Dates: start: 20070322
  2. XANAX [Suspect]
     Indication: FEELING OF RELAXATION
  3. METHADONE HYDROCHLORIDE [Suspect]
  4. HEROIN [Concomitant]

REACTIONS (2)
  - CELLULITIS [None]
  - OVERDOSE [None]
